FAERS Safety Report 5644280-3 (Version None)
Quarter: 2008Q1

REPORT INFORMATION
  Report Type: 
  Country: None (occurrence: None)
  Receive Date: 20080229
  Receipt Date: 20080218
  Transmission Date: 20080703
  Serious: Yes (Hospitalization, Other)
  Sender: FDA-Public Use
  Company Number: PHHY2008JP01418

PATIENT
  Age: 52 Year
  Sex: Male

DRUGS (4)
  1. CYCLOSPORINE [Suspect]
     Indication: RENAL TRANSPLANT
     Route: 065
  2. SIMULECT [Suspect]
     Indication: RENAL TRANSPLANT
     Route: 065
  3. MYCOPHENOLATE MOFETIL [Concomitant]
     Indication: RENAL TRANSPLANT
  4. METHYLPREDNISOLONE [Concomitant]
     Indication: RENAL TRANSPLANT

REACTIONS (8)
  - ILEUS [None]
  - KIDNEY TRANSPLANT REJECTION [None]
  - LIVER DISORDER [None]
  - NECROSIS [None]
  - POSTOPERATIVE WOUND COMPLICATION [None]
  - SURGERY [None]
  - URETERIC ANASTOMOSIS COMPLICATION [None]
  - URETERIC PERFORATION [None]
